FAERS Safety Report 4360260-2 (Version None)
Quarter: 2004Q2

REPORT INFORMATION
  Report Type: 
  Country: None (occurrence: None)
  Receive Date: 20040513
  Receipt Date: 20040430
  Transmission Date: 20050107
  Serious: Yes (Other)
  Sender: FDA-Public Use
  Company Number: DSK-2004-03797

PATIENT
  Age: 55 Year
  Sex: Female

DRUGS (4)
  1. SALIGREN [Suspect]
     Indication: SJOGREN'S SYNDROME
     Dosage: 90 MG (30 MG, 3 IN 1 D) PER ORAL
     Route: 048
     Dates: start: 20031010, end: 20040315
  2. TAGAMET [Concomitant]
  3. RIDAURA [Concomitant]
  4. PREDNISOLONE [Concomitant]

REACTIONS (6)
  - DIARRHOEA [None]
  - ENTERITIS [None]
  - HYPERVENTILATION [None]
  - INAPPROPRIATE ANTIDIURETIC HORMONE SECRETION [None]
  - MUSCULOSKELETAL STIFFNESS [None]
  - OLIGURIA [None]
